FAERS Safety Report 15458839 (Version 7)
Quarter: 2021Q2

REPORT INFORMATION
  Report Type: Spontaneous
  Country: PT (occurrence: PT)
  Receive Date: 20181003
  Receipt Date: 20210610
  Transmission Date: 20210716
  Serious: Yes (Death, Life-Threatening, Hospitalization, Other)
  Sender: FDA-Public Use
  Company Number: PT-GLAXOSMITHKLINE-PT2018GSK178219

PATIENT
  Age: 56 Year
  Sex: Female
  Weight: 45 kg

DRUGS (9)
  1. ZYBAN [Suspect]
     Active Substance: BUPROPION HYDROCHLORIDE
     Dosage: 1 DF, QD  150 MG
     Route: 048
     Dates: start: 20180421
  2. ZYBAN [Suspect]
     Active Substance: BUPROPION HYDROCHLORIDE
     Dosage: 1 DF, BID, (1TABLET AT 9AM + 1TABLET AT 4?5PM), 150 MG
     Dates: start: 20180411, end: 20180503
  3. PERINDOPRIL + INDAPAMIDE [Concomitant]
     Indication: HYPERTENSION
     Dosage: UNK UNK, QD
     Dates: start: 20150812
  4. ATORVASTATIN [Concomitant]
     Active Substance: ATORVASTATIN
     Indication: PRODUCT USED FOR UNKNOWN INDICATION
     Dosage: 1 DF, QD, TABLET (AFTER THE DINNER, 10MG
     Dates: start: 20180411
  5. ZYBAN [Suspect]
     Active Substance: BUPROPION HYDROCHLORIDE
     Indication: EX-TOBACCO USER
     Dosage: 1 DF, QD, TABLET (IN THE MORNING), 300 MG
     Route: 048
     Dates: start: 20180411
  6. BISOPROLOL [Concomitant]
     Active Substance: BISOPROLOL
     Indication: HYPERTENSION
     Dosage: 0.5 DF, QD, TABLET (AT NIGHT), 5 MG
     Dates: start: 20170208
  7. SPIOLTO RESPIMAT [Concomitant]
     Active Substance: OLODATEROL HYDROCHLORIDE\TIOTROPIUM BROMIDE MONOHYDRATE
     Indication: CHRONIC OBSTRUCTIVE PULMONARY DISEASE
     Dosage: 1 DF, QD. (INHALATION)
     Dates: start: 20170208
  8. ZYBAN [Suspect]
     Active Substance: BUPROPION HYDROCHLORIDE
     Dosage: 2 DF, QD
     Dates: start: 20180427
  9. LORAZEPAM. [Concomitant]
     Active Substance: LORAZEPAM
     Indication: PRODUCT USED FOR UNKNOWN INDICATION
     Dosage: 1 DF, QD, TABLET (AT BEDTIME), 1MG
     Dates: start: 20160915

REACTIONS (22)
  - Acidosis [Fatal]
  - Renal impairment [Fatal]
  - Measles [Unknown]
  - Bradycardia [Fatal]
  - Rash maculo-papular [Unknown]
  - Pruritus [Unknown]
  - Pyrexia [Unknown]
  - Condition aggravated [Fatal]
  - Multiple organ dysfunction syndrome [Fatal]
  - Cardiogenic shock [Fatal]
  - Toxic epidermal necrolysis [Fatal]
  - Odynophagia [Unknown]
  - Product use issue [Unknown]
  - Thrombocytopenia [Fatal]
  - Shock [Fatal]
  - Cardiac arrest [Fatal]
  - Rash morbilliform [Unknown]
  - Conjunctivitis [Unknown]
  - Product complaint [Unknown]
  - Oliguria [Unknown]
  - Tongue oedema [Unknown]
  - Therapy change [Fatal]

NARRATIVE: CASE EVENT DATE: 20180427
